FAERS Safety Report 12446071 (Version 1)
Quarter: 2016Q2

REPORT INFORMATION
  Report Type: Spontaneous
  Country: FR (occurrence: FR)
  Receive Date: 20160608
  Receipt Date: 20160608
  Transmission Date: 20160815
  Serious: Yes (Death, Hospitalization)
  Sender: FDA-Public Use
  Company Number: FR-STRIDES ARCOLAB LIMITED-2016SP003902

PATIENT

DRUGS (4)
  1. FENOFIBRATE. [Suspect]
     Active Substance: FENOFIBRATE
     Indication: PRODUCT USED FOR UNKNOWN INDICATION
     Dosage: STRIP
  2. IBUPROFEN. [Suspect]
     Active Substance: IBUPROFEN
     Indication: PRODUCT USED FOR UNKNOWN INDICATION
     Dosage: ONE STRIP OF 400MG
  3. PREDNISOLONE. [Suspect]
     Active Substance: PREDNISOLONE
     Indication: PRODUCT USED FOR UNKNOWN INDICATION
     Dosage: 20 TABLETS OF 20MG
  4. COLCHICINE. [Suspect]
     Active Substance: COLCHICINE
     Indication: PRODUCT USED FOR UNKNOWN INDICATION
     Dosage: 50-60 TABLETS OF 1 MG

REACTIONS (22)
  - Cardiac failure [Fatal]
  - Systolic dysfunction [Unknown]
  - Metabolic acidosis [Unknown]
  - Diastolic dysfunction [Unknown]
  - Vomiting [Unknown]
  - Ventricular dysfunction [Unknown]
  - Multiple organ dysfunction syndrome [Unknown]
  - Respiratory distress [Unknown]
  - Somnolence [Unknown]
  - Disseminated intravascular coagulation [Unknown]
  - Prothrombin time abnormal [Unknown]
  - Thrombocytopenia [Unknown]
  - Hypertension [Unknown]
  - Haemorrhage [Unknown]
  - Acute kidney injury [Unknown]
  - Renal impairment [Unknown]
  - Hepatocellular injury [Unknown]
  - Anuria [Unknown]
  - Suicide attempt [Unknown]
  - White blood cell count increased [Unknown]
  - Cardiogenic shock [Unknown]
  - Overdose [Unknown]
